FAERS Safety Report 20489174 (Version 1)
Quarter: 2022Q1

REPORT INFORMATION
  Report Type: Spontaneous
  Country: US (occurrence: None)
  Receive Date: 20220217
  Receipt Date: 20220217
  Transmission Date: 20220423
  Serious: Yes (Other)
  Sender: FDA-Public Use
  Company Number: None

PATIENT
  Age: 81 Year
  Sex: Female
  Weight: 69.3 kg

DRUGS (10)
  1. CAPECITABINE [Suspect]
     Active Substance: CAPECITABINE
     Indication: Rectal cancer
     Dosage: OTHER FREQUENCY : BID 7 ON 7 OFF;?
     Route: 048
     Dates: start: 20211025
  2. CAPECITABINE [Suspect]
     Active Substance: CAPECITABINE
     Indication: Rectal cancer
     Dosage: OTHER FREQUENCY : BID 7 ON 7 OFF;?
     Route: 048
     Dates: start: 20211025
  3. ATORVASTATIN [Concomitant]
     Active Substance: ATORVASTATIN
  4. CLOPIDOGREL [Concomitant]
     Active Substance: CLOPIDOGREL BISULFATE
  5. DEXAMETHASONE [Concomitant]
     Active Substance: DEXAMETHASONE
  6. FAMOTIDINE [Concomitant]
     Active Substance: FAMOTIDINE
  7. OXALIPLATIN [Concomitant]
     Active Substance: OXALIPLATIN
  8. TUMS [Concomitant]
     Active Substance: CALCIUM CARBONATE
  9. TYLENLOL [Concomitant]
  10. VITAMIN B [Concomitant]
     Active Substance: VITAMIN B

REACTIONS (1)
  - Hospice care [None]

NARRATIVE: CASE EVENT DATE: 20220217
